FAERS Safety Report 9222904 (Version 4)
Quarter: 2015Q1

REPORT INFORMATION
  Report Type: Spontaneous
  Country: JP (occurrence: JP)
  Receive Date: 20130410
  Receipt Date: 20150324
  Transmission Date: 20150721
  Serious: Yes (Other)
  Sender: FDA-Public Use
  Company Number: JP-PFIZER INC-2013106299

PATIENT
  Age: 74 Year
  Sex: Male

DRUGS (5)
  1. SUTENT [Suspect]
     Active Substance: SUNITINIB MALATE
     Dosage: 25 MG, DAILY (CONTINUOUSLY ON SCHEDULE 4/2)
     Dates: end: 20130716
  2. SUTENT [Suspect]
     Active Substance: SUNITINIB MALATE
     Dosage: 37.5 MG, DAILY
     Dates: start: 20120301
  3. SUTENT [Suspect]
     Active Substance: SUNITINIB MALATE
     Dosage: 37.5 MG, UNK
  4. SUTENT [Suspect]
     Active Substance: SUNITINIB MALATE
     Dosage: 25 MG, UNK
  5. SUTENT [Suspect]
     Active Substance: SUNITINIB MALATE
     Indication: GASTROINTESTINAL STROMAL TUMOUR
     Dosage: 50 MG, 1X/DAY (IN REPEATED 6-WEEK CYCLES OF 4 WEEK, FOLLOWED BY 2 WEEK OFF (SCHEDULE 4/2))
     Route: 048
     Dates: start: 20120215

REACTIONS (6)
  - Pneumonia [Recovered/Resolved]
  - Hypertension [Unknown]
  - Bone marrow failure [Recovered/Resolved]
  - Fatigue [Recovered/Resolved]
  - Epistaxis [Recovered/Resolved]
  - Malaise [Recovered/Resolved]
